FAERS Safety Report 4646919-8 (Version None)
Quarter: 2005Q2

REPORT INFORMATION
  Report Type: 
  Country: None (occurrence: None)
  Receive Date: 20050427
  Receipt Date: 20050322
  Transmission Date: 20051028
  Serious: Yes (Hospitalization)
  Sender: FDA-Public Use
  Company Number: US-MERCK-0503USA03741

PATIENT
  Age: 72 Year
  Sex: Male
  Weight: 91 kg

DRUGS (8)
  1. VIOXX [Suspect]
     Route: 048
     Dates: start: 20010101, end: 20010501
  2. VASOTEC [Concomitant]
     Route: 048
  3. ASPIRIN [Concomitant]
     Route: 048
  4. LASIX [Concomitant]
     Route: 048
  5. PRILOSEC [Concomitant]
     Route: 048
  6. LIPITOR [Concomitant]
     Route: 048
  7. ALLOPURINOL [Concomitant]
     Route: 048
  8. TYLENOL [Concomitant]
     Route: 048

REACTIONS (17)
  - ANAEMIA [None]
  - ANGINA UNSTABLE [None]
  - ATRIAL FIBRILLATION [None]
  - CARDIAC FAILURE CONGESTIVE [None]
  - CONJUNCTIVAL HAEMORRHAGE [None]
  - DYSPNOEA [None]
  - DYSPNOEA PAROXYSMAL NOCTURNAL [None]
  - GASTRITIS HAEMORRHAGIC [None]
  - HEADACHE [None]
  - HYPERKALAEMIA [None]
  - HYPOVOLAEMIA [None]
  - MITRAL VALVE INCOMPETENCE [None]
  - MYOCARDIAL INFARCTION [None]
  - ORTHOPNOEA [None]
  - ORTHOSTATIC HYPOTENSION [None]
  - PAIN IN EXTREMITY [None]
  - RENAL FAILURE CHRONIC [None]
